FAERS Safety Report 4493647-8 (Version None)
Quarter: 2004Q3

REPORT INFORMATION
  Report Type: 
  Country: None (occurrence: None)
  Receive Date: 20040921
  Receipt Date: 20040122
  Transmission Date: 20050211
  Serious: Yes (Hospitalization)
  Sender: FDA-Public Use
  Company Number: 163-20785-04010601

PATIENT
  Age: 74 Year
  Sex: Female
  Weight: 57 kg

DRUGS (5)
  1. THALOMID [Suspect]
     Indication: MULTIPLE MYELOMA
     Dosage: 150 MG, QHS, ORAL
     Route: 048
     Dates: start: 20021205, end: 20040130
  2. DOXORUBICIN HYDROCHLORIDE [Suspect]
     Indication: MULTIPLE MYELOMA
     Dosage: 40 MG/M2, INTRAVENOUS
     Route: 042
     Dates: start: 20021205, end: 20030703
  3. VINCRISTINE [Suspect]
     Indication: MULTIPLE MYELOMA
     Dosage: 2 MG, INTRAVENOUS
     Route: 042
     Dates: start: 20021205, end: 20030703
  4. DECADRON [Suspect]
     Indication: MULTIPLE MYELOMA
     Dosage: 40 MG, ORAL
     Route: 048
     Dates: start: 20021205, end: 20030703
  5. PREDNISONE [Suspect]
     Indication: MULTIPLE MYELOMA
     Dosage: 50 MG, EVERY OTHER DAY, ORAL
     Route: 048
     Dates: start: 20030806, end: 20040130

REACTIONS (9)
  - DEEP VEIN THROMBOSIS [None]
  - DISEASE PROGRESSION [None]
  - EPISTAXIS [None]
  - ERYTHEMA [None]
  - OEDEMA PERIPHERAL [None]
  - PAIN IN EXTREMITY [None]
  - SKIN DISCOLOURATION [None]
  - SWELLING [None]
  - TRAUMATIC HAEMATOMA [None]
